FAERS Safety Report 15201792 (Version 1)
Quarter: 2018Q3

REPORT INFORMATION
  Report Type: Spontaneous
  Country: GB (occurrence: GB)
  Receive Date: 20180726
  Receipt Date: 20180726
  Transmission Date: 20181010
  Serious: Yes (Hospitalization)
  Sender: FDA-Public Use
  Company Number: GB-TORRENT-00016921

PATIENT
  Age: 21 Year
  Sex: Female

DRUGS (1)
  1. ARIPIPRAZOLE. [Suspect]
     Active Substance: ARIPIPRAZOLE
     Indication: MENTAL DISORDER
     Dosage: 5 MG, UNK
     Route: 048

REACTIONS (5)
  - Insomnia [Unknown]
  - Decreased appetite [Unknown]
  - Hallucination, auditory [Unknown]
  - Condition aggravated [Unknown]
  - Emotional disorder [Unknown]
